FAERS Safety Report 9099059 (Version 2)
Quarter: 2013Q1

REPORT INFORMATION
  Report Type: Spontaneous
  Country: US (occurrence: US)
  Receive Date: 20130213
  Receipt Date: 20130306
  Transmission Date: 20140127
  Serious: No
  Sender: FDA-Public Use
  Company Number: US-PFIZER INC-2013051731

PATIENT
  Age: 64 Year
  Sex: Female
  Weight: 82.54 kg

DRUGS (7)
  1. SINEQUAN [Suspect]
     Indication: ANXIETY
     Dosage: UNK
     Dates: start: 1976, end: 2006
  2. SINEQUAN [Suspect]
     Indication: DEPRESSION
  3. DOXEPIN [Suspect]
     Indication: ANXIETY
     Dosage: UNK
     Dates: start: 2006
  4. DOXEPIN [Suspect]
     Indication: DEPRESSION
  5. DOXEPIN [Suspect]
     Indication: ANXIETY
     Dosage: 25 MG, 1X/DAY
     Route: 048
  6. DOXEPIN [Suspect]
     Indication: DEPRESSION
  7. VALIUM [Concomitant]
     Dosage: 2 MG, 1X/DAY

REACTIONS (2)
  - Dermatitis allergic [Unknown]
  - Drug hypersensitivity [Unknown]
